FAERS Safety Report 4432338-6 (Version None)
Quarter: 2004Q3

REPORT INFORMATION
  Report Type: 
  Country: None (occurrence: None)
  Receive Date: 20040825
  Receipt Date: 20040816
  Transmission Date: 20050211
  Serious: Yes (Death)
  Sender: FDA-Public Use
  Company Number: GB-BRISTOL-MYERS SQUIBB COMPANY-12680518

PATIENT
  Age: 55 Year
  Sex: Female
  Weight: 56 kg

DRUGS (6)
  1. HOLOXAN [Suspect]
     Indication: MALIGNANT FIBROUS HISTIOCYTOMA
     Route: 041
     Dates: start: 20040712, end: 20040713
  2. KETAMINE HCL [Suspect]
     Indication: PHANTOM PAIN
     Route: 042
     Dates: start: 20040710, end: 20040713
  3. DIAMORPHINE [Suspect]
     Indication: PHANTOM PAIN
     Route: 042
     Dates: start: 20040710, end: 20040713
  4. AMITRIPTYLINE HCL [Suspect]
     Indication: PHANTOM PAIN
     Route: 048
     Dates: end: 20040712
  5. GABAPENTIN [Suspect]
     Indication: PHANTOM PAIN
     Route: 048
     Dates: end: 20040712
  6. MOVICOL [Concomitant]
     Dates: end: 20040713

REACTIONS (1)
  - COMA [None]
